FAERS Safety Report 18261267 (Version 2)
Quarter: 2020Q3

REPORT INFORMATION
  Report Type: Spontaneous
  Country: US (occurrence: US)
  Receive Date: 20200914
  Receipt Date: 20200924
  Transmission Date: 20201103
  Serious: No
  Sender: FDA-Public Use
  Company Number: US-AMGEN-USASP2020146390

PATIENT
  Sex: Male

DRUGS (1)
  1. NEULASTA [Suspect]
     Active Substance: PEGFILGRASTIM
     Indication: WHITE BLOOD CELL COUNT ABNORMAL
     Dosage: UNK
     Route: 065
     Dates: start: 20200902

REACTIONS (8)
  - Dizziness [Unknown]
  - Abdominal pain [Recovered/Resolved]
  - Mobility decreased [Unknown]
  - Nausea [Unknown]
  - Bone pain [Recovering/Resolving]
  - Hyperhidrosis [Recovered/Resolved]
  - Flushing [Unknown]
  - Back pain [Recovering/Resolving]

NARRATIVE: CASE EVENT DATE: 20200903
